FAERS Safety Report 8276715-4 (Version None)
Quarter: 2012Q2

REPORT INFORMATION
  Report Type: 
  Country: None (occurrence: None)
  Receive Date: 20120412
  Receipt Date: 20120412
  Transmission Date: 20120825
  Serious: Yes (Hospitalization)
  Sender: FDA-Public Use
  Company Number: None

PATIENT
  Age: 51 Year
  Sex: Male
  Weight: 106 kg

DRUGS (1)
  1. MULTAQ [Suspect]

REACTIONS (13)
  - VISION BLURRED [None]
  - HYPERHIDROSIS [None]
  - FATIGUE [None]
  - CHILLS [None]
  - URINARY INCONTINENCE [None]
  - HEPATIC ENCEPHALOPATHY [None]
  - ALCOHOL WITHDRAWAL SYNDROME [None]
  - HEADACHE [None]
  - AMMONIA INCREASED [None]
  - HYPOAESTHESIA [None]
  - HEPATIC STEATOSIS [None]
  - WEIGHT DECREASED [None]
  - DIARRHOEA [None]
